FAERS Safety Report 10035349 (Version 2)
Quarter: 2014Q1

REPORT INFORMATION
  Report Type: Spontaneous
  Country: JP (occurrence: JP)
  Receive Date: 20140325
  Receipt Date: 20140325
  Transmission Date: 20141002
  Serious: Yes (Other)
  Sender: FDA-Public Use
  Company Number: JP-PFIZER INC-2014078021

PATIENT
  Age: 88 Year
  Sex: Female

DRUGS (3)
  1. NORVASC [Suspect]
     Indication: HYPERTENSION
     Dosage: 5 MG, DAILY
     Route: 048
     Dates: start: 1995
  2. CRAVIT [Suspect]
     Dosage: UNK
     Route: 048
  3. LENDORMIN [Suspect]
     Dosage: UNK
     Route: 042

REACTIONS (3)
  - Altered state of consciousness [Recovered/Resolved]
  - Ammonia increased [Recovered/Resolved]
  - Urinary tract infection [Unknown]
